FAERS Safety Report 10064198 (Version 1)
Quarter: 2013Q4

REPORT INFORMATION
  Report Type: Spontaneous
  Country: US (occurrence: None)
  Receive Date: 20131118
  Receipt Date: 20131118
  Transmission Date: 20140711
  Serious: Yes (Other)
  Sender: FDA-Public Use
  Company Number: 2013-00136

PATIENT
  Age: 69 Year
  Sex: Female
  Weight: 58.51 kg

DRUGS (3)
  1. ZICAM ULTRA COLD REMEDY CRYSTALS [Suspect]
     Indication: NASOPHARYNGITIS
     Dosage: 1 PACKET ORALLY
     Route: 048
     Dates: start: 20131104
  2. NORVASC [Concomitant]
  3. NEXIUM [Concomitant]

REACTIONS (1)
  - Heart rate increased [None]
